FAERS Safety Report 6125789-5 (Version None)
Quarter: 2009Q1

REPORT INFORMATION
  Report Type: 
  Country: None (occurrence: None)
  Receive Date: 20090319
  Receipt Date: 20090319
  Transmission Date: 20090719
  Serious: Yes (Life-Threatening, Hospitalization, Disabling, Other)
  Sender: FDA-Public Use
  Company Number: None

PATIENT
  Age: 30 Year
  Sex: Male
  Weight: 79.3795 kg

DRUGS (1)
  1. PAXIL [Suspect]
     Indication: DEPRESSION

REACTIONS (3)
  - AKATHISIA [None]
  - COMPLETED SUICIDE [None]
  - MANIA [None]
